FAERS Safety Report 5887364-7 (Version None)
Quarter: 2008Q3

REPORT INFORMATION
  Report Type: 
  Country: None (occurrence: None)
  Receive Date: 20080915
  Receipt Date: 20080814
  Transmission Date: 20090109
  Serious: Yes (Other)
  Sender: FDA-Public Use
  Company Number: CIP08001559

PATIENT
  Age: 80 Year
  Sex: Female

DRUGS (7)
  1. ACTONEL [Suspect]
     Indication: OSTEOPOROSIS
     Dosage: ORAL
     Route: 048
     Dates: start: 20000101
  2. ACTONEL [Suspect]
     Dosage: 35 MG ONCE WEEKLY, ORAL
     Route: 048
  3. OSCAL /00108001/ (CALCIUM CARBONATE) [Concomitant]
  4. SYNTHROID [Concomitant]
  5. DETROL LA [Concomitant]
  6. VITAMINS NOS (VITAMINS NOS) [Concomitant]
  7. GLUCOSAMINE + CHONDROITIN (CHONDROITIN SULFATE, GLUCOSAMINE) [Concomitant]

REACTIONS (8)
  - ARTHRALGIA [None]
  - FALL [None]
  - JOINT RANGE OF MOTION DECREASED [None]
  - PELVIC FRACTURE [None]
  - POSTOPERATIVE ADHESION [None]
  - RIB FRACTURE [None]
  - SCAR [None]
  - SPINAL FRACTURE [None]
